FAERS Safety Report 10580241 (Version 1)
Quarter: 2014Q4

REPORT INFORMATION
  Report Type: Spontaneous
  Country: US (occurrence: US)
  Receive Date: 20141112
  Receipt Date: 20141112
  Transmission Date: 20150529
  Serious: Yes (Other)
  Sender: FDA-Public Use
  Company Number: US-BAXTER-2014BAX067242

PATIENT
  Age: 49 Year
  Sex: Female

DRUGS (2)
  1. SEVOFLURANE, USP [Suspect]
     Active Substance: SEVOFLURANE
     Indication: GENERAL ANAESTHESIA
     Route: 055
  2. PROPOFOL. [Suspect]
     Active Substance: PROPOFOL
     Indication: GENERAL ANAESTHESIA
     Route: 065

REACTIONS (4)
  - Hypotension [Recovered/Resolved]
  - Retroperitoneal haematoma [Unknown]
  - Peritoneal haemorrhage [Unknown]
  - Tachycardia [Recovered/Resolved]
